FAERS Safety Report 15741350 (Version 1)
Quarter: 2018Q4

REPORT INFORMATION
  Report Type: Report from Study
  Country: FR (occurrence: FR)
  Receive Date: 20181219
  Receipt Date: 20181219
  Transmission Date: 20190205
  Serious: Yes (Death, Life-Threatening, Hospitalization, Other)
  Sender: FDA-Public Use
  Company Number: FR-JAZZ-2018-FR-006983

PATIENT

DRUGS (2)
  1. DEFITELIO [Suspect]
     Active Substance: DEFIBROTIDE SODIUM
     Indication: PROPHYLAXIS
     Dosage: 25 MG/KG, QD
     Route: 042
     Dates: start: 20170425, end: 20170524
  2. DEFITELIO [Suspect]
     Active Substance: DEFIBROTIDE SODIUM
     Indication: VENOOCCLUSIVE DISEASE

REACTIONS (11)
  - Gastrointestinal haemorrhage [Unknown]
  - Rash [Unknown]
  - Adenovirus infection [Fatal]
  - Haemoglobin decreased [Recovering/Resolving]
  - Aplasia [Recovered/Resolved]
  - Pseudomonal sepsis [Unknown]
  - Hypertension [Unknown]
  - Diarrhoea [Unknown]
  - Hyperferritinaemia [Unknown]
  - Mucosal inflammation [Unknown]
  - Vomiting [Unknown]

NARRATIVE: CASE EVENT DATE: 20170426
